FAERS Safety Report 17671596 (Version 3)
Quarter: 2020Q2

REPORT INFORMATION
  Report Type: Spontaneous
  Country: US (occurrence: US)
  Receive Date: 20200415
  Receipt Date: 20200617
  Transmission Date: 20200713
  Serious: Yes (Other)
  Sender: FDA-Public Use
  Company Number: NVSC2020US099122

PATIENT

DRUGS (1)
  1. BEOVU [Suspect]
     Active Substance: BROLUCIZUMAB-DBLL
     Indication: PRODUCT USED FOR UNKNOWN INDICATION
     Dosage: 6 MG, UNKNOWN
     Route: 047

REACTIONS (5)
  - Eye haemorrhage [Unknown]
  - Visual field defect [Unknown]
  - Retinal vasculitis [Unknown]
  - Retinal vascular occlusion [Unknown]
  - Retinal perivascular sheathing [Unknown]
